FAERS Safety Report 6345453-7 (Version None)
Quarter: 2009Q3

REPORT INFORMATION
  Report Type: 
  Country: None (occurrence: None)
  Receive Date: 20090909
  Receipt Date: 20090903
  Transmission Date: 20100115
  Serious: Yes (Hospitalization)
  Sender: FDA-Public Use
  Company Number: US-JNJFOC-20090902254

PATIENT
  Sex: Female
  Weight: 92.08 kg

DRUGS (12)
  1. FENTANYL TRANSDERMAL SYSTEM [Suspect]
     Indication: BACK PAIN
     Route: 062
     Dates: start: 20090101
  2. ASPIRIN [Concomitant]
     Indication: ANTICOAGULANT THERAPY
     Route: 048
  3. AMLODIPINE [Concomitant]
     Route: 048
  4. ENALAPRIL MALEATE [Concomitant]
     Route: 048
  5. FLUOXETINE [Concomitant]
     Route: 048
  6. UNKNOWN MEDICATION [Concomitant]
     Indication: INFECTION PROPHYLAXIS
     Route: 048
  7. FOLIC ACID [Concomitant]
     Indication: MEDICAL DIET
     Route: 048
  8. FISH OIL [Concomitant]
     Indication: NUTRITIONAL SUPPORT
     Dosage: 1000 MG TWICE A DAY
     Route: 048
  9. OXYCODONE [Concomitant]
     Indication: PAIN
     Dosage: ONE OR TWO EVERY 4-6 HOURS AS NEEDED
     Route: 048
  10. MULTI-VITAMINS [Concomitant]
     Indication: NUTRITIONAL SUPPORT
     Route: 048
  11. NIASPAN [Concomitant]
     Route: 048
  12. VITAMIN D [Concomitant]
     Indication: NUTRITIONAL SUPPORT
     Route: 048

REACTIONS (8)
  - APHONIA [None]
  - ASTHMA [None]
  - BONE PAIN [None]
  - CHOKING SENSATION [None]
  - DYSPNOEA [None]
  - INADEQUATE ANALGESIA [None]
  - PRODUCT QUALITY ISSUE [None]
  - WRONG TECHNIQUE IN DRUG USAGE PROCESS [None]
